FAERS Safety Report 13616401 (Version 1)
Quarter: 2017Q2

REPORT INFORMATION
  Report Type: Report from Study
  Country: US (occurrence: US)
  Receive Date: 20170606
  Receipt Date: 20170606
  Transmission Date: 20170830
  Serious: Yes (Hospitalization)
  Sender: FDA-Public Use
  Company Number: US-ROCHE-1944418

PATIENT
  Age: 70 Year
  Sex: Male

DRUGS (4)
  1. ZELBORAF [Suspect]
     Active Substance: VEMURAFENIB
     Indication: MALIGNANT MELANOMA
     Dosage: NO
     Route: 048
     Dates: start: 20170501, end: 20170517
  2. ZELBORAF [Suspect]
     Active Substance: VEMURAFENIB
     Dosage: REDUCED ;ONGOING: YES
     Route: 048
     Dates: start: 20170517
  3. COTELLIC [Suspect]
     Active Substance: COBIMETINIB
     Indication: MALIGNANT MELANOMA
     Dosage: NO
     Route: 048
     Dates: start: 20170501, end: 20170515
  4. COTELLIC [Suspect]
     Active Substance: COBIMETINIB
     Dosage: REDUCED ;ONGOING: YES
     Route: 048
     Dates: start: 20170517

REACTIONS (2)
  - Disorientation [Recovered/Resolved]
  - Aphasia [Not Recovered/Not Resolved]

NARRATIVE: CASE EVENT DATE: 20170515
